FAERS Safety Report 19698101 (Version 1)
Quarter: 2021Q3

REPORT INFORMATION
  Report Type: Spontaneous
  Country: GB (occurrence: GB)
  Receive Date: 20210813
  Receipt Date: 20210813
  Transmission Date: 20211014
  Serious: Yes (Hospitalization)
  Sender: FDA-Public Use
  Company Number: GB-VERTEX PHARMACEUTICALS-2021-012176

PATIENT
  Sex: Male

DRUGS (2)
  1. DEOXYRIBONUCLEASE HUMAN [Concomitant]
  2. KAFTRIO [Suspect]
     Active Substance: ELEXACAFTOR\IVACAFTOR\TEZACAFTOR
     Indication: CYSTIC FIBROSIS
     Dosage: (IVA 75 MG/TEZA 50 MG/ELEXA 100 MG) 2W
     Route: 048

REACTIONS (1)
  - Hospitalisation [Unknown]
